FAERS Safety Report 19349897 (Version 1)
Quarter: 2021Q2

REPORT INFORMATION
  Report Type: Spontaneous
  Country: US (occurrence: US)
  Receive Date: 20210531
  Receipt Date: 20210531
  Transmission Date: 20210717
  Serious: Yes (Hospitalization)
  Sender: FDA-Public Use
  Company Number: US-DRREDDYS-USA/USA/21/0135948

PATIENT
  Age: 41 Year
  Sex: Female

DRUGS (21)
  1. IRINOTECAN [Suspect]
     Active Substance: IRINOTECAN
     Dates: start: 20190722, end: 20190726
  2. TEMOZOLOMIDE. [Suspect]
     Active Substance: TEMOZOLOMIDE
     Indication: NEUROBLASTOMA
     Route: 048
     Dates: start: 20190416, end: 20190420
  3. TEMOZOLOMIDE. [Suspect]
     Active Substance: TEMOZOLOMIDE
     Dates: start: 20190722, end: 20190726
  4. CISPLATIN. [Suspect]
     Active Substance: CISPLATIN
     Indication: NEUROBLASTOMA
  5. OXYCODONE AND ACETAMINOPHEN [Suspect]
     Active Substance: ACETAMINOPHEN\OXYCODONE HYDROCHLORIDE
     Dosage: 5/325MG EVERY 4 HOURS AFTER DISCHARGE FOR PAIN CONTROL
  6. TOPOTECAN HYDROCHLORIDE FOR INJECTION [Suspect]
     Active Substance: TOPOTECAN HYDROCHLORIDE
     Indication: NEUROBLASTOMA
  7. IRINOTECAN [Suspect]
     Active Substance: IRINOTECAN
     Indication: NEUROBLASTOMA
     Dosage: 50 MG/M2 OVER 90 MIN FROM DAYS 1?5.
     Route: 042
     Dates: start: 20190506, end: 20190510
  8. MORPHINE [Suspect]
     Active Substance: MORPHINE
     Route: 048
  9. METHADONE [Suspect]
     Active Substance: METHADONE HYDROCHLORIDE
     Indication: NEUROBLASTOMA
     Route: 048
  10. HYDROMORPHONE [Suspect]
     Active Substance: HYDROMORPHONE
     Indication: NEUROBLASTOMA
     Route: 042
  11. GABAPENTIN. [Suspect]
     Active Substance: GABAPENTIN
     Indication: NEUROBLASTOMA
  12. IRINOTECAN [Suspect]
     Active Substance: IRINOTECAN
     Dates: start: 20190604, end: 20190608
  13. MORPHINE [Suspect]
     Active Substance: MORPHINE
     Indication: NEUROBLASTOMA
     Route: 048
  14. TEMOZOLOMIDE. [Suspect]
     Active Substance: TEMOZOLOMIDE
     Dates: start: 20190604, end: 20190608
  15. ATROPINE. [Suspect]
     Active Substance: ATROPINE
     Indication: DIARRHOEA
  16. DIPHENHYDRAMINE HYDROCHLORIDE. [Suspect]
     Active Substance: DIPHENHYDRAMINE HYDROCHLORIDE
     Indication: NEUROBLASTOMA
  17. CYCLOPHOSPHAMIDE. [Suspect]
     Active Substance: CYCLOPHOSPHAMIDE
     Indication: NEUROBLASTOMA
  18. TEMOZOLOMIDE. [Suspect]
     Active Substance: TEMOZOLOMIDE
  19. ETOPOSIDE. [Suspect]
     Active Substance: ETOPOSIDE
     Indication: NEUROBLASTOMA
  20. OXYCODONE AND ACETAMINOPHEN [Suspect]
     Active Substance: ACETAMINOPHEN\OXYCODONE HYDROCHLORIDE
     Indication: NEUROBLASTOMA
  21. IRINOTECAN [Suspect]
     Active Substance: IRINOTECAN

REACTIONS (14)
  - Pain [Unknown]
  - Sinus tachycardia [Unknown]
  - Neuropathy peripheral [Unknown]
  - Electrocardiogram ST segment depression [Unknown]
  - Respiratory depression [Unknown]
  - Diarrhoea [Unknown]
  - Constipation [Unknown]
  - Sedation [Unknown]
  - Neuralgia [Unknown]
  - Confusional state [Unknown]
  - Drug ineffective [Unknown]
  - Haemodynamic instability [Unknown]
  - Mental status changes [Unknown]
  - Product use in unapproved indication [Unknown]
